FAERS Safety Report 9321995 (Version 1)
Quarter: 2013Q2

REPORT INFORMATION
  Report Type: Spontaneous
  Country: US (occurrence: None)
  Receive Date: 20130530
  Receipt Date: 20130530
  Transmission Date: 20140414
  Serious: No
  Sender: FDA-Public Use
  Company Number: None

PATIENT
  Age: 53 Year
  Sex: Female

DRUGS (1)
  1. HUMIRA [Suspect]
     Indication: CROHN^S DISEASE
     Dosage: STARTER DOSE TAPER EVERY OTHER WEEK SQ
     Route: 058
     Dates: start: 20130313, end: 20130416

REACTIONS (3)
  - Pain in extremity [None]
  - Neck pain [None]
  - Pain in extremity [None]
